FAERS Safety Report 8388268-0 (Version None)
Quarter: 2012Q2

REPORT INFORMATION
  Report Type: 
  Country: None (occurrence: None)
  Receive Date: 20120525
  Receipt Date: 20120518
  Transmission Date: 20120825
  Serious: Yes (Death)
  Sender: FDA-Public Use
  Company Number: DE-UCBSA-055712

PATIENT
  Age: 86 Year
  Sex: Male
  Weight: 70 kg

DRUGS (5)
  1. CLARIUM [Concomitant]
  2. MADOPAR LT [Concomitant]
  3. MADOPAR DEPOT [Concomitant]
  4. NEUPRO [Suspect]
     Indication: PARKINSON'S DISEASE
     Dates: start: 20110523, end: 20110524
  5. STALEVO 100 [Concomitant]

REACTIONS (2)
  - PARKINSON'S DISEASE [None]
  - HALLUCINATION, VISUAL [None]
